FAERS Safety Report 24945952 (Version 2)
Quarter: 2025Q2

REPORT INFORMATION
  Report Type: Report from Study
  Country: US (occurrence: US)
  Receive Date: 20250209
  Receipt Date: 20250401
  Transmission Date: 20250716
  Serious: Yes (Hospitalization)
  Sender: JOHNSON AND JOHNSON
  Company Number: US-JNJFOC-20250195511

PATIENT
  Age: 21 Year

DRUGS (8)
  1. SPRAVATO [Suspect]
     Active Substance: ESKETAMINE
     Indication: Depression
     Route: 045
     Dates: start: 20221005, end: 20241121
  2. SPRAVATO [Suspect]
     Active Substance: ESKETAMINE
     Route: 045
     Dates: start: 20221003, end: 20221003
  3. OLANZAPINE [Concomitant]
     Active Substance: OLANZAPINE
  4. PROPRANOLOL HYDROCHLORIDE [Concomitant]
     Active Substance: PROPRANOLOL HYDROCHLORIDE
  5. LAMOTRIGINE [Concomitant]
     Active Substance: LAMOTRIGINE
     Dates: start: 202203
  6. LITHIUM [Concomitant]
     Active Substance: LITHIUM
  7. FISH OIL [Concomitant]
     Active Substance: FISH OIL
  8. CREON [Concomitant]
     Active Substance: PANCRELIPASE AMYLASE\PANCRELIPASE LIPASE\PANCRELIPASE PROTEASE
     Indication: Pancreatic failure

REACTIONS (2)
  - Hallucination, visual [Recovered/Resolved]
  - Photophobia [Unknown]

NARRATIVE: CASE EVENT DATE: 20241121
